FAERS Safety Report 8784373 (Version 2)
Quarter: 2013Q4

REPORT INFORMATION
  Report Type: Spontaneous
  Country: GB (occurrence: GB)
  Receive Date: 20120913
  Receipt Date: 20131106
  Transmission Date: 20140711
  Serious: Yes (Other)
  Sender: FDA-Public Use
  Company Number: GB-009507513-1209GBR003778

PATIENT
  Age: 42 Year
  Sex: Female
  Weight: 99.5 kg

DRUGS (2)
  1. COZAAR 50 MG [Suspect]
     Indication: HYPERTENSION
     Dosage: 50 MG, UNK
     Route: 048
     Dates: start: 20120627, end: 20120824
  2. RAMIPRIL [Concomitant]
     Dosage: 1.25 MG, UNK
     Dates: start: 20120301, end: 20120724

REACTIONS (4)
  - Crying [Recovered/Resolved]
  - Feeling abnormal [Recovered/Resolved]
  - Feelings of worthlessness [Recovered/Resolved]
  - Suicidal ideation [Recovered/Resolved]
